FAERS Safety Report 8997407 (Version 1)
Quarter: 2013Q1

REPORT INFORMATION
  Report Type: Spontaneous
  Country: US (occurrence: US)
  Receive Date: 20130104
  Receipt Date: 20130104
  Transmission Date: 20140127
  Serious: No
  Sender: FDA-Public Use
  Company Number: US-PFIZER INC-2012323356

PATIENT
  Age: 60 Year
  Sex: Female

DRUGS (7)
  1. MOTRIN [Suspect]
     Dosage: UNK
  2. IBUPROFEN [Suspect]
     Dosage: UNK
  3. BACTRIM [Suspect]
     Dosage: UNK
  4. ASA [Suspect]
     Dosage: UNK
  5. TYLEX [Suspect]
     Dosage: UNK
  6. CODEINE [Suspect]
     Dosage: UNK
  7. TYLOX [Suspect]
     Dosage: UNK

REACTIONS (6)
  - Drug hypersensitivity [Unknown]
  - Pruritus [Unknown]
  - Nausea [Unknown]
  - Hallucination [Unknown]
  - Swelling [Unknown]
  - Abdominal discomfort [Unknown]
